FAERS Safety Report 7676321-6 (Version None)
Quarter: 2011Q3

REPORT INFORMATION
  Report Type: 
  Country: None (occurrence: None)
  Receive Date: 20110811
  Receipt Date: 20110808
  Transmission Date: 20111222
  Serious: No
  Sender: FDA-Public Use
  Company Number: US-PFIZER INC-2011177165

PATIENT
  Sex: Female
  Weight: 52.608 kg

DRUGS (2)
  1. PREMARIN [Suspect]
     Dosage: 43.5 G, 3X/DAY
     Dates: start: 20110718, end: 20110101
  2. ESTRADIOL [Concomitant]
     Dosage: 0.5 MG, DAILY

REACTIONS (4)
  - ABDOMINAL DISTENSION [None]
  - CHILLS [None]
  - VULVOVAGINAL BURNING SENSATION [None]
  - ABDOMINAL PAIN [None]
